FAERS Safety Report 20644300 (Version 1)
Quarter: 2022Q1

REPORT INFORMATION
  Report Type: Spontaneous
  Country: FR (occurrence: FR)
  Receive Date: 20220328
  Receipt Date: 20220328
  Transmission Date: 20220423
  Serious: Yes (Life-Threatening)
  Sender: FDA-Public Use
  Company Number: None

PATIENT
  Age: 66 Year
  Sex: Male
  Weight: 72 kg

DRUGS (5)
  1. INSULIN GLARGINE [Suspect]
     Active Substance: INSULIN GLARGINE
     Indication: Product used for unknown indication
     Dosage: 30 INTERNATIONAL UNIT, UNKNOWN
     Route: 058
  2. PIPERACILLIN SODIUM\TAZOBACTAM SODIUM [Suspect]
     Active Substance: PIPERACILLIN SODIUM\TAZOBACTAM SODIUM
     Indication: Product used for unknown indication
     Dosage: 3 G, TID
     Route: 042
     Dates: start: 20220222
  3. LEVOMEPROMAZINE EMBONATE [Suspect]
     Active Substance: LEVOMEPROMAZINE EMBONATE
     Indication: Product used for unknown indication
     Dosage: 25 MG, TID
     Route: 042
     Dates: start: 20220224
  4. URAPIDIL [Suspect]
     Active Substance: URAPIDIL
     Indication: Product used for unknown indication
     Dosage: 5 MG, EVERY HOUR
     Route: 042
     Dates: start: 20220223
  5. LANSOPRAZOLE [Suspect]
     Active Substance: LANSOPRAZOLE
     Indication: Product used for unknown indication
     Dosage: 30 MG, UNKNOWN
     Route: 048
     Dates: start: 20220227

REACTIONS (1)
  - Neutropenia [Not Recovered/Not Resolved]

NARRATIVE: CASE EVENT DATE: 20220301
